FAERS Safety Report 20442229 (Version 2)
Quarter: 2022Q3

REPORT INFORMATION
  Report Type: Spontaneous
  Country: JP (occurrence: JP)
  Receive Date: 20220208
  Receipt Date: 20220714
  Transmission Date: 20221027
  Serious: Yes (Hospitalization)
  Sender: FDA-Public Use
  Company Number: JP-GSKNCCC-Case-01402450_AE-53993

PATIENT

DRUGS (2)
  1. ZOVIRAX [Suspect]
     Active Substance: ACYCLOVIR
     Indication: Herpes zoster
     Dosage: 5 MG/KG
     Route: 041
     Dates: start: 20220112
  2. ZOVIRAX [Suspect]
     Active Substance: ACYCLOVIR
     Dosage: 18 MG/KG
     Dates: start: 20220121

REACTIONS (5)
  - Hospitalisation [Unknown]
  - Rash [Unknown]
  - Pain [Unknown]
  - Incorrect product administration duration [Unknown]
  - Off label use [Unknown]
